FAERS Safety Report 9263392 (Version 1)
Quarter: 2013Q2

REPORT INFORMATION
  Report Type: Spontaneous
  Country: US (occurrence: None)
  Receive Date: 20130429
  Receipt Date: 20130429
  Transmission Date: 20140414
  Serious: Yes (Other)
  Sender: FDA-Public Use
  Company Number: None

PATIENT
  Sex: Female
  Weight: 45.36 kg

DRUGS (1)
  1. LYRICA (PREGABALIN) [Suspect]
     Indication: NEURALGIA
     Dosage: 26MG ONCE A DAY MORNING
     Route: 048
     Dates: start: 20130405, end: 20130409

REACTIONS (2)
  - Joint swelling [None]
  - Local swelling [None]
